FAERS Safety Report 6011241-4 (Version None)
Quarter: 2008Q4

REPORT INFORMATION
  Report Type: 
  Country: None (occurrence: None)
  Receive Date: 20081218
  Receipt Date: 20081211
  Transmission Date: 20090506
  Serious: Yes (Hospitalization)
  Sender: FDA-Public Use
  Company Number: US-MERCK-0805USA00725

PATIENT
  Sex: Female

DRUGS (1)
  1. FOSAMAX [Suspect]
     Indication: BONE NEOPLASM MALIGNANT
     Route: 048

REACTIONS (5)
  - BONE CANCER METASTATIC [None]
  - BREAST CANCER [None]
  - LUNG CANCER METASTATIC [None]
  - METASTASES TO LIVER [None]
  - TOOTH LOSS [None]
